FAERS Safety Report 8520566-X (Version None)
Quarter: 2012Q3

REPORT INFORMATION
  Report Type: 
  Country: None (occurrence: None)
  Receive Date: 20120719
  Receipt Date: 20120716
  Transmission Date: 20120928
  Serious: Yes (Other)
  Sender: FDA-Public Use
  Company Number: US-PFIZER INC-2012171376

PATIENT

DRUGS (1)
  1. DILANTIN [Suspect]
     Dosage: 100 MG, UNK

REACTIONS (3)
  - DIZZINESS [None]
  - HEADACHE [None]
  - CONVULSION [None]
